FAERS Safety Report 8360921-4 (Version None)
Quarter: 2012Q1

REPORT INFORMATION
  Report Type: 
  Country: None (occurrence: None)
  Receive Date: 20120323
  Receipt Date: 20110223
  Transmission Date: 20120608
  Serious: Yes (Other)
  Sender: FDA-Public Use
  Company Number: 163-21880-11012384

PATIENT
  Age: 78 Year
  Sex: Female

DRUGS (4)
  1. REVLIMID [Suspect]
  2. REVLIMID [Suspect]
     Indication: MYELODYSPLASTIC SYNDROME
     Dosage: 10 MG, DAILY X21 DAYS ON, THEN 7 DAYS OFF, PO
     Route: 048
     Dates: start: 20101201
  3. REVLIMID [Suspect]
     Indication: IRON METABOLISM DISORDER
     Dosage: 10 MG, DAILY X21 DAYS ON, THEN 7 DAYS OFF, PO
     Route: 048
     Dates: start: 20101201
  4. EXJADE [Concomitant]

REACTIONS (1)
  - PLATELET COUNT DECREASED [None]
